FAERS Safety Report 6829231-8 (Version None)
Quarter: 2010Q3

REPORT INFORMATION
  Report Type: 
  Country: None (occurrence: None)
  Receive Date: 20100709
  Receipt Date: 20070307
  Transmission Date: 20110219
  Serious: No
  Sender: FDA-Public Use
  Company Number: US-PFIZER INC-2007019929

PATIENT
  Sex: Female
  Weight: 86.18 kg

DRUGS (5)
  1. CHANTIX [Suspect]
     Indication: SMOKING CESSATION THERAPY
     Dates: start: 20070201
  2. ZANTAC [Concomitant]
     Indication: ULCER
  3. SYNTHROID [Concomitant]
     Indication: THYROID DISORDER
  4. ALL OTHER THERAPEUTIC PRODUCTS [Concomitant]
     Indication: RESTLESS LEGS SYNDROME
  5. VITAMINS [Concomitant]

REACTIONS (5)
  - AGITATION [None]
  - FEELING JITTERY [None]
  - HEADACHE [None]
  - IRRITABILITY [None]
  - NERVOUSNESS [None]
